FAERS Safety Report 9713426 (Version 3)
Quarter: 2013Q4

REPORT INFORMATION
  Report Type: Report from Study
  Country: US (occurrence: US)
  Receive Date: 20131126
  Receipt Date: 20131202
  Transmission Date: 20140711
  Serious: Yes (Hospitalization, Other)
  Sender: FDA-Public Use
  Company Number: US-TEVA-444221USA

PATIENT
  Age: 54 Year
  Sex: Female

DRUGS (3)
  1. CLOZAPINE [Suspect]
     Indication: BIPOLAR DISORDER
     Route: 048
     Dates: end: 20131124
  2. VALPROATE SEMISODIUM [Suspect]
  3. LITHIUM [Concomitant]
     Dosage: 2000 MILLIGRAM DAILY;

REACTIONS (2)
  - Convulsion [Unknown]
  - Drug level increased [Unknown]
